FAERS Safety Report 8287918-7 (Version None)
Quarter: 2012Q2

REPORT INFORMATION
  Report Type: 
  Country: None (occurrence: None)
  Receive Date: 20120416
  Receipt Date: 20120405
  Transmission Date: 20120825
  Serious: Yes (Hospitalization)
  Sender: FDA-Public Use
  Company Number: FR-ASTRAZENECA-2012SE22872

PATIENT
  Age: 71 Year
  Sex: Female
  Weight: 49 kg

DRUGS (9)
  1. NEXIUM [Suspect]
     Route: 048
     Dates: start: 20120220, end: 20120227
  2. ASPIRIN [Concomitant]
  3. HEPARIN SODIUM [Concomitant]
     Dosage: INTERMITTANT
  4. AMLODIPINE BESYLATE [Suspect]
     Route: 048
     Dates: start: 20120130, end: 20120227
  5. LOVENOX [Concomitant]
     Dosage: INTERMITTANT
  6. KAYEXALATE [Concomitant]
  7. CARTEOLOL HYDROCHLORIDE [Concomitant]
     Dates: start: 20100101
  8. ATORVASTATIN [Concomitant]
  9. EPOGEN [Concomitant]

REACTIONS (2)
  - DRUG RASH WITH EOSINOPHILIA AND SYSTEMIC SYMPTOMS [None]
  - EOSINOPHILIA [None]
